FAERS Safety Report 20896952 (Version 1)
Quarter: 2022Q2

REPORT INFORMATION
  Report Type: Spontaneous
  Country: CN (occurrence: CN)
  Receive Date: 20220531
  Receipt Date: 20220531
  Transmission Date: 20220721
  Serious: Yes (Life-Threatening, Hospitalization)
  Sender: FDA-Public Use
  Company Number: CN-PFIZER INC-202200772349

PATIENT
  Age: 52 Year
  Sex: Male

DRUGS (6)
  1. CYTARABINE [Suspect]
     Active Substance: CYTARABINE
     Indication: Neoplasm
     Dosage: 3.0 G, 1X/DAY
     Route: 041
     Dates: start: 20220510, end: 20220513
  2. ONDANSETRON HYDROCHLORIDE [Concomitant]
     Active Substance: ONDANSETRON HYDROCHLORIDE
     Indication: Antiemetic supportive care
     Dosage: 8 MG, 2X/DAY
     Route: 042
     Dates: start: 20220510, end: 20220513
  3. PREDNISOLONE [Concomitant]
     Active Substance: PREDNISOLONE
     Indication: Cytarabine syndrome
     Dosage: 60 MG, 1X/DAY
     Route: 041
     Dates: start: 20220510, end: 20220513
  4. SODIUM BICARBONATE [Concomitant]
     Active Substance: SODIUM BICARBONATE
     Indication: Blood uric acid
     Dosage: 60 ML, 2X/DAY
     Route: 041
     Dates: start: 20220510, end: 20220513
  5. VORICONAZOLE [Concomitant]
     Active Substance: VORICONAZOLE
     Indication: Antifungal treatment
     Dosage: 200 MG, 2X/DAY
     Route: 048
     Dates: start: 20220506, end: 20220512
  6. VORICONAZOLE [Concomitant]
     Active Substance: VORICONAZOLE
     Indication: Antifungal treatment
     Dosage: 200 MG, 2X/DAY
     Dates: start: 20220512, end: 20220526

REACTIONS (2)
  - Febrile neutropenia [Recovering/Resolving]
  - Platelet count decreased [Recovering/Resolving]

NARRATIVE: CASE EVENT DATE: 20220522
